FAERS Safety Report 12787453 (Version 1)
Quarter: 2016Q3

REPORT INFORMATION
  Report Type: Spontaneous
  Country: US (occurrence: US)
  Receive Date: 20160927
  Receipt Date: 20160927
  Transmission Date: 20161109
  Serious: Yes (Disabling)
  Sender: FDA-Public Use
  Company Number: None

PATIENT
  Age: 26 Year
  Sex: Female

DRUGS (1)
  1. PARAGARD T 380A [Suspect]
     Active Substance: COPPER
     Indication: CONTRACEPTION
     Route: 058
     Dates: start: 20160617, end: 20160927

REACTIONS (2)
  - Uterine disorder [None]
  - Pelvic pain [None]

NARRATIVE: CASE EVENT DATE: 20160927
